FAERS Safety Report 11414919 (Version 1)
Quarter: 2015Q3

REPORT INFORMATION
  Report Type: Spontaneous
  Country: US (occurrence: None)
  Receive Date: 20150824
  Receipt Date: 20150824
  Transmission Date: 20151125
  Serious: Yes (Other)
  Sender: FDA-Public Use
  Company Number: None

PATIENT
  Age: 85 Year
  Sex: Male

DRUGS (11)
  1. TERAZOSIN [Concomitant]
     Active Substance: TERAZOSIN\TERAZOSIN HYDROCHLORIDE
  2. FOLIC ACID. [Concomitant]
     Active Substance: FOLIC ACID
  3. LENALIDOMIDE [Concomitant]
     Active Substance: LENALIDOMIDE
  4. DEXAMETHASONE. [Concomitant]
     Active Substance: DEXAMETHASONE
  5. ACYCLOVIR. [Concomitant]
     Active Substance: ACYCLOVIR
  6. THIAMINE. [Concomitant]
     Active Substance: THIAMINE
  7. LOVASTATIN. [Concomitant]
     Active Substance: LOVASTATIN
  8. TRIAMTERENE-HCTZ [Concomitant]
     Active Substance: HYDROCHLOROTHIAZIDE\TRIAMTERENE
  9. FAMOTIDINE. [Concomitant]
     Active Substance: FAMOTIDINE
  10. REVLIMID [Suspect]
     Active Substance: LENALIDOMIDE
     Indication: PLASMA CELL MYELOMA
     Route: 048
     Dates: start: 20150731, end: 20150805
  11. BORTEZOMIB [Concomitant]
     Active Substance: BORTEZOMIB

REACTIONS (1)
  - Petechiae [None]

NARRATIVE: CASE EVENT DATE: 20150806
